FAERS Safety Report 4900295-1 (Version None)
Quarter: 2006Q1

REPORT INFORMATION
  Report Type: 
  Country: None (occurrence: None)
  Receive Date: 20060203
  Receipt Date: 20060126
  Transmission Date: 20060701
  Serious: Yes (Death)
  Sender: FDA-Public Use
  Company Number: US-JNJFOC-20060105772

PATIENT
  Sex: Female

DRUGS (13)
  1. INFLIXIMAB [Suspect]
     Indication: RHEUMATOID ARTHRITIS
     Route: 042
  2. COUMADIN [Concomitant]
  3. DARVOCET-N 100 [Concomitant]
  4. DARVOCET-N 100 [Concomitant]
  5. LOPRESSOR [Concomitant]
  6. LORTAB [Concomitant]
  7. LORTAB [Concomitant]
  8. PREDNISONE [Concomitant]
  9. METHOTREXATE [Concomitant]
  10. ULTRAM [Concomitant]
  11. VERAPAMIL [Concomitant]
  12. PROTONIX [Concomitant]
  13. ACTONEL [Concomitant]

REACTIONS (1)
  - NEOPLASM MALIGNANT [None]
